FAERS Safety Report 10947101 (Version 2)
Quarter: 2015Q2

REPORT INFORMATION
  Report Type: Spontaneous
  Country: US (occurrence: US)
  Receive Date: 20150321
  Receipt Date: 20150525
  Transmission Date: 20150821
  Serious: No
  Sender: FDA-Public Use
  Company Number: US-JNJFOC-20140612395

PATIENT
  Age: 28 Year
  Sex: Female

DRUGS (4)
  1. PRIMIDONE. [Suspect]
     Active Substance: PRIMIDONE
     Indication: SEIZURE
     Route: 065
  2. SEROQUEL [Suspect]
     Active Substance: QUETIAPINE FUMARATE
     Indication: SEIZURE
     Route: 065
  3. LYRICA [Suspect]
     Active Substance: PREGABALIN
     Indication: SEIZURE
     Route: 065
  4. TOPAMAX [Suspect]
     Active Substance: TOPIRAMATE
     Indication: PRODUCT USED FOR UNKNOWN INDICATION
     Route: 065

REACTIONS (2)
  - Exposure during pregnancy [Recovered/Resolved]
  - Anticonvulsant drug level decreased [Unknown]

NARRATIVE: CASE EVENT DATE: 200804
